FAERS Safety Report 4798202-8 (Version None)
Quarter: 2005Q4

REPORT INFORMATION
  Report Type: 
  Country: None (occurrence: None)
  Receive Date: 20051014
  Receipt Date: 20051007
  Transmission Date: 20060501
  Serious: Yes (Death)
  Sender: FDA-Public Use
  Company Number: 2005GB01914

PATIENT
  Sex: Female

DRUGS (3)
  1. SEROQUEL [Suspect]
     Route: 048
  2. LAMOTRIGINE [Concomitant]
  3. VALPROATE SODIUM [Concomitant]

REACTIONS (1)
  - COMPLETED SUICIDE [None]
